FAERS Safety Report 20700123 (Version 2)
Quarter: 2022Q3

REPORT INFORMATION
  Report Type: Spontaneous
  Country: US (occurrence: US)
  Receive Date: 20220412
  Receipt Date: 20220811
  Transmission Date: 20221026
  Serious: Yes (Hospitalization)
  Sender: FDA-Public Use
  Company Number: US-PFIZER INC-202200518498

PATIENT
  Age: 72 Year
  Sex: Male
  Weight: 58.97 kg

DRUGS (3)
  1. RAPAMUNE [Suspect]
     Active Substance: SIROLIMUS
     Dosage: 0.5 MG, 1X/DAY
     Route: 048
  2. LASIX FAIBLE [Concomitant]
     Dosage: UNK
  3. TORSEMIDE [Concomitant]
     Active Substance: TORSEMIDE
     Dosage: UNK

REACTIONS (8)
  - Coronary artery disease [Unknown]
  - Abnormal weight gain [Unknown]
  - Off label use [Unknown]
  - Pleural effusion [Unknown]
  - Fluid retention [Unknown]
  - Malaise [Unknown]
  - Dyspnoea [Unknown]
  - Insomnia [Unknown]
